FAERS Safety Report 16536430 (Version 1)
Quarter: 2019Q3

REPORT INFORMATION
  Report Type: Report from Study
  Country: None (occurrence: US)
  Receive Date: 20190706
  Receipt Date: 20190706
  Transmission Date: 20191004
  Serious: Yes (Hospitalization)
  Sender: FDA-Public Use
  Company Number: US-ABBVIE-19K-163-2842580-00

PATIENT
  Age: 58 Year
  Sex: Male
  Weight: 88.98 kg

DRUGS (1)
  1. CREON [Suspect]
     Active Substance: PANCRELIPASE AMYLASE\PANCRELIPASE LIPASE\PANCRELIPASE PROTEASE
     Indication: PANCREATITIS
     Dosage: ONE CAPSULE HALF AN HOUR BEFORE EVERY MEAL
     Route: 048
     Dates: start: 2008

REACTIONS (1)
  - Wound infection [Recovered/Resolved]

NARRATIVE: CASE EVENT DATE: 20190628
